FAERS Safety Report 5698373-5 (Version None)
Quarter: 2008Q2

REPORT INFORMATION
  Report Type: 
  Country: None (occurrence: None)
  Receive Date: 20080403
  Receipt Date: 20080319
  Transmission Date: 20081010
  Serious: Yes (Hospitalization)
  Sender: FDA-Public Use
  Company Number: DSJ-2008-03633

PATIENT
  Age: 22 Year
  Sex: Male

DRUGS (1)
  1. OFLOCET AURICULAIRE (OFLOXACIN) (EAR DROPS) (OFLOXACIN) [Suspect]
     Indication: PROPHYLAXIS
     Dosage: 2 DOSAGE FORMS (1 DOSAGE FORMS, 2 IN 1 D), AURICULAR (OTIC)
     Route: 001
     Dates: start: 20050101, end: 20050101

REACTIONS (4)
  - DEAFNESS [None]
  - INNER EAR DISORDER [None]
  - TYMPANIC MEMBRANE PERFORATION [None]
  - VERTIGO [None]
